FAERS Safety Report 7527320-6 (Version None)
Quarter: 2011Q2

REPORT INFORMATION
  Report Type: 
  Country: None (occurrence: None)
  Receive Date: 20110607
  Receipt Date: 20110512
  Transmission Date: 20111010
  Serious: Yes (Hospitalization)
  Sender: FDA-Public Use
  Company Number: US-BAYER-201017609NA

PATIENT
  Age: 16 Year
  Sex: Female
  Weight: 113.83 kg

DRUGS (14)
  1. YASMIN [Suspect]
     Indication: CONTRACEPTION
     Dosage: UNK
     Route: 048
     Dates: start: 20060916, end: 20061016
  2. VICODIN [Concomitant]
  3. DICYCLOMINE [Concomitant]
     Dosage: UNK
     Dates: start: 20060828
  4. SINGULAIR [Concomitant]
     Indication: ASTHMA
     Dosage: UNK
     Dates: start: 20051101
  5. YASMIN [Suspect]
     Dosage: UNK
     Dates: start: 20050501, end: 20071101
  6. VALTREX [Concomitant]
     Dosage: UNK
     Dates: start: 20060517, end: 20061121
  7. FLUCONAZOLE [Concomitant]
     Dosage: UNK
     Dates: start: 20060524, end: 20060623
  8. PROTONIX [Concomitant]
     Indication: GASTROOESOPHAGEAL REFLUX DISEASE
     Dosage: UNK
     Dates: start: 20060910, end: 20061010
  9. ALBUTEROL SULFATE AUTOHALER [Concomitant]
     Indication: ASTHMA
     Dosage: UNK
     Dates: start: 20040401
  10. PHENERGAN HCL [Concomitant]
  11. YAZ [Suspect]
     Indication: PRODUCT USED FOR UNKNOWN INDICATION
  12. PROPOXYPHENE NAPSYLATE [Concomitant]
     Dosage: UNK
     Dates: start: 20060910
  13. ADVAIR DISKUS 100/50 [Concomitant]
     Indication: ASTHMA
     Dosage: UNK
     Dates: start: 20050101
  14. FLONASE [Concomitant]
     Indication: ASTHMA
     Dosage: UNK
     Dates: start: 20070201

REACTIONS (6)
  - SCAR [None]
  - ANXIETY [None]
  - CHOLECYSTITIS ACUTE [None]
  - CHOLECYSTECTOMY [None]
  - DEPRESSION [None]
  - CHOLELITHIASIS [None]
